FAERS Safety Report 7465889-0 (Version None)
Quarter: 2011Q2

REPORT INFORMATION
  Report Type: 
  Country: None (occurrence: None)
  Receive Date: 20110509
  Receipt Date: 20100413
  Transmission Date: 20111010
  Serious: No
  Sender: FDA-Public Use
  Company Number: US-ALEXION-A201000420

PATIENT
  Sex: Female

DRUGS (1)
  1. SOLIRIS [Suspect]
     Indication: PAROXYSMAL NOCTURNAL HAEMOGLOBINURIA
     Dosage: UNK
     Route: 042

REACTIONS (8)
  - HEADACHE [None]
  - SENSATION OF FOREIGN BODY [None]
  - MIGRAINE [None]
  - NAUSEA [None]
  - THERAPEUTIC RESPONSE DECREASED [None]
  - NEURALGIA [None]
  - DIARRHOEA [None]
  - FATIGUE [None]
